FAERS Safety Report 22285707 (Version 4)
Quarter: 2024Q2

REPORT INFORMATION
  Report Type: Spontaneous
  Country: US (occurrence: US)
  Receive Date: 20230504
  Receipt Date: 20240403
  Transmission Date: 20240716
  Serious: Yes (Other)
  Sender: FDA-Public Use
  Company Number: US-BIOMARINQT-US-2023-150059

PATIENT

DRUGS (1)
  1. VOXZOGO [Suspect]
     Active Substance: VOSORITIDE
     Indication: Osteochondrodysplasia
     Dosage: 1.2 MILLIGRAM, QD
     Route: 058
     Dates: start: 20220210

REACTIONS (5)
  - Limb operation [Unknown]
  - Knee operation [Unknown]
  - Muscle release [Unknown]
  - Hip surgery [Unknown]
  - Knee deformity [Unknown]

NARRATIVE: CASE EVENT DATE: 20230101
